FAERS Safety Report 12405464 (Version 1)
Quarter: 2016Q2

REPORT INFORMATION
  Report Type: Spontaneous
  Country: US (occurrence: None)
  Receive Date: 20160525
  Receipt Date: 20160525
  Transmission Date: 20160815
  Serious: Yes (Other)
  Sender: FDA-Public Use
  Company Number: None

PATIENT
  Age: 49 Year
  Sex: Female
  Weight: 77.11 kg

DRUGS (2)
  1. BENADRYL [Concomitant]
     Active Substance: DIPHENHYDRAMINE HYDROCHLORIDE
  2. CIPROFLOXACIN, 500 MG [Suspect]
     Active Substance: CIPROFLOXACIN
     Indication: DIVERTICULITIS
     Route: 048
     Dates: start: 20160514, end: 20160522

REACTIONS (7)
  - Arthralgia [None]
  - Pain [None]
  - Myalgia [None]
  - Urticaria [None]
  - Eye swelling [None]
  - Memory impairment [None]
  - Pruritus generalised [None]

NARRATIVE: CASE EVENT DATE: 20160517
